FAERS Safety Report 14385541 (Version 2)
Quarter: 2018Q3

REPORT INFORMATION
  Report Type: Spontaneous
  Country: US (occurrence: US)
  Receive Date: 20180115
  Receipt Date: 20180716
  Transmission Date: 20181010
  Serious: Yes (Other)
  Sender: FDA-Public Use
  Company Number: US-SA-2016SA234062

PATIENT
  Age: 52 Year
  Sex: Female
  Weight: 87 kg

DRUGS (18)
  1. TAXOTERE [Suspect]
     Active Substance: DOCETAXEL
     Dosage: UNK UNK,Q3W
     Route: 042
     Dates: start: 20150604, end: 20150604
  2. XANAX [Concomitant]
     Active Substance: ALPRAZOLAM
     Dosage: .25 MG,PRN
     Route: 065
  3. ACETYLSALICYLIC ACID [Concomitant]
     Active Substance: ASPIRIN
     Dosage: 81 MG,QD
     Route: 065
  4. CYTOXAN [Concomitant]
     Active Substance: CYCLOPHOSPHAMIDE
     Dosage: UNK UNK,QCY
     Route: 065
     Dates: start: 20150218, end: 20150218
  5. CYTOXAN [Concomitant]
     Active Substance: CYCLOPHOSPHAMIDE
     Dosage: UNK UNK,QCY
     Route: 065
     Dates: start: 20150604, end: 20150604
  6. TAXOTERE [Suspect]
     Active Substance: DOCETAXEL
     Indication: BREAST CANCER
     Dosage: UNK UNK,Q3W
     Route: 042
     Dates: start: 20150218, end: 20150218
  7. VISTARIL [HYDROXYZINE EMBONATE] [Concomitant]
  8. FLEXERIL [CEFIXIME] [Concomitant]
  9. CAPOZIDE [Concomitant]
     Active Substance: CAPTOPRIL\HYDROCHLOROTHIAZIDE
     Dosage: UNK UNK,QD
     Route: 065
  10. NEOSAR [Concomitant]
     Active Substance: CYCLOPHOSPHAMIDE
     Indication: CHEMOTHERAPY
  11. CAPTOPRIL. [Concomitant]
     Active Substance: CAPTOPRIL
     Dosage: UNK
     Dates: start: 19960101
  12. TAXOTERE [Suspect]
     Active Substance: DOCETAXEL
     Dosage: UNK UNK,UNK
     Route: 042
     Dates: start: 201504, end: 201504
  13. CARAFATE [Concomitant]
     Active Substance: SUCRALFATE
     Dosage: 1 G,QID
     Route: 065
  14. DEXILANT [Concomitant]
     Active Substance: DEXLANSOPRAZOLE
     Dosage: 60 MG,QD
     Route: 065
  15. PERCOCET [OXYCODONE HYDROCHLORIDE;OXYCODONE TEREPHTHALATE;PARACETAMOL] [Concomitant]
     Dosage: UNK UNK,PRN
     Route: 065
  16. CYCLOBENZAPRINE HYDROCHLORIDE. [Concomitant]
     Active Substance: CYCLOBENZAPRINE HYDROCHLORIDE
     Dosage: 10 MG,PRN
     Route: 065
  17. ADRIAMYCIN [DOXORUBICIN] [Concomitant]
     Indication: CHEMOTHERAPY
     Dosage: UNK UNK,
     Route: 065
  18. POTASSIUM [Concomitant]
     Active Substance: POTASSIUM
     Dosage: UNK
     Dates: start: 19960101

REACTIONS (5)
  - Emotional distress [Unknown]
  - Anxiety [Unknown]
  - Pain [Unknown]
  - Psychological trauma [Unknown]
  - Alopecia [Recovering/Resolving]

NARRATIVE: CASE EVENT DATE: 20150218
